FAERS Safety Report 7091821-8 (Version None)
Quarter: 2010Q4

REPORT INFORMATION
  Report Type: 
  Country: None (occurrence: None)
  Receive Date: 20101101
  Receipt Date: 20101025
  Transmission Date: 20110411
  Serious: Yes (Hospitalization)
  Sender: FDA-Public Use
  Company Number: GP-10-10-0012

PATIENT
  Age: 29 Year
  Sex: Female
  Weight: 72.7 kg

DRUGS (10)
  1. TOPIRAMATE [Suspect]
     Indication: MIGRAINE
     Dosage: 50MG, BID, ORAL
     Route: 048
  2. FLUOXETINE [Concomitant]
  3. BACLOFEN [Concomitant]
  4. PEG-3350 [Concomitant]
  5. BISACODYL [Concomitant]
  6. ORAL CONTRACEPTIVES [Concomitant]
  7. SUMATRIPTAN SUCCINATE [Concomitant]
  8. PROMETHAZINE [Concomitant]
  9. ACETAMINOPHEN [Concomitant]
  10. LORAZEPAM [Concomitant]

REACTIONS (4)
  - DYSKINESIA [None]
  - MYOCLONUS [None]
  - PSYCHOTIC DISORDER [None]
  - TARDIVE DYSKINESIA [None]
